FAERS Safety Report 13652031 (Version 1)
Quarter: 2017Q2

REPORT INFORMATION
  Report Type: Spontaneous
  Country: US (occurrence: US)
  Receive Date: 20170614
  Receipt Date: 20170614
  Transmission Date: 20170830
  Serious: No
  Sender: FDA-Public Use
  Company Number: US-SIGMAPHARM LABORATORIES, LLC-2017SIG00035

PATIENT
  Age: 52 Year
  Sex: Female
  Weight: 58.5 kg

DRUGS (5)
  1. PROTRIPTYLINE HYDROCHLORIDE. [Suspect]
     Active Substance: PROTRIPTYLINE HYDROCHLORIDE
     Indication: DEPRESSION
     Dosage: 5 MG, 1X/DAY
     Route: 048
     Dates: start: 20170319, end: 20170322
  2. MAGNESIUM [Concomitant]
     Active Substance: MAGNESIUM
  3. PROTRIPTYLINE HYDROCHLORIDE. [Suspect]
     Active Substance: PROTRIPTYLINE HYDROCHLORIDE
     Indication: ANXIETY
  4. CALCIUM [Concomitant]
     Active Substance: CALCIUM
  5. MULTIVITAMIN [Concomitant]
     Active Substance: VITAMINS

REACTIONS (4)
  - Dizziness [Recovered/Resolved]
  - Balance disorder [Recovered/Resolved]
  - Tachycardia [Recovering/Resolving]
  - Blood pressure abnormal [Recovered/Resolved]

NARRATIVE: CASE EVENT DATE: 20170319
